FAERS Safety Report 16218283 (Version 1)
Quarter: 2019Q2

REPORT INFORMATION
  Report Type: Spontaneous
  Country: TR (occurrence: TR)
  Receive Date: 20190419
  Receipt Date: 20190419
  Transmission Date: 20190711
  Serious: Yes (Other)
  Sender: FDA-Public Use
  Company Number: TR-ENDO PHARMACEUTICALS INC-2019-103924

PATIENT
  Age: 60 Year
  Sex: Male

DRUGS (2)
  1. DULOXETINE HYDROCHLORIDE. [Suspect]
     Active Substance: DULOXETINE HYDROCHLORIDE
     Indication: FIBROMYALGIA
     Dosage: 30 MG, UNK
     Route: 065
  2. DEXKETOPROFEN [Concomitant]
     Active Substance: DEXKETOPROFEN
     Indication: FIBROMYALGIA
     Dosage: 25 MG, UNKNOWN
     Route: 065

REACTIONS (1)
  - Tardive dyskinesia [Recovered/Resolved]
